FAERS Safety Report 10483808 (Version 1)
Quarter: 2014Q3

REPORT INFORMATION
  Report Type: Spontaneous
  Country: US (occurrence: None)
  Receive Date: 20140929
  Receipt Date: 20140929
  Transmission Date: 20150326
  Serious: No
  Sender: FDA-Public Use
  Company Number: None

PATIENT
  Sex: Female

DRUGS (3)
  1. DEXAMETHASONE. [Concomitant]
     Active Substance: DEXAMETHASONE
  2. VELCADE [Suspect]
     Active Substance: BORTEZOMIB
     Indication: PLASMA CELL MYELOMA
  3. CYTOXAN [Suspect]
     Active Substance: CYCLOPHOSPHAMIDE
     Indication: PLASMA CELL MYELOMA

REACTIONS (12)
  - Injection site erythema [None]
  - Injection site pruritus [None]
  - Insomnia [None]
  - Feeling abnormal [None]
  - Alopecia [None]
  - Hypoaesthesia [None]
  - Dizziness [None]
  - Injection site irritation [None]
  - Logorrhoea [None]
  - Impaired driving ability [None]
  - Injection site warmth [None]
  - Stem cell transplant [None]
